FAERS Safety Report 6467387-X (Version None)
Quarter: 2009Q4

REPORT INFORMATION
  Report Type: 
  Country: None (occurrence: None)
  Receive Date: 20091202
  Receipt Date: 20091125
  Transmission Date: 20100525
  Serious: Yes (Other)
  Sender: FDA-Public Use
  Company Number: A0832013A

PATIENT
  Age: 55 Year
  Sex: Female

DRUGS (3)
  1. ADVAIR DISKUS 100/50 [Suspect]
     Indication: ASTHMA
     Dosage: 1PUFF TWICE PER DAY
     Route: 055
     Dates: start: 20010401, end: 20081101
  2. ALBUTEROL [Concomitant]
  3. CALCIUM + VITAMIN D [Concomitant]

REACTIONS (2)
  - CATARACT [None]
  - VISUAL IMPAIRMENT [None]
